FAERS Safety Report 15689951 (Version 46)
Quarter: 2022Q4

REPORT INFORMATION
  Report Type: Spontaneous
  Country: CA (occurrence: CA)
  Receive Date: 20181205
  Receipt Date: 20221010
  Transmission Date: 20230112
  Serious: Yes (Hospitalization, Other)
  Sender: FDA-Public Use
  Company Number: CA-CELLTRION INC.-2018CA020340

PATIENT

DRUGS (31)
  1. INFLECTRA [Suspect]
     Active Substance: INFLIXIMAB-DYYB
     Indication: Inflammatory bowel disease
     Dosage: 300 MG, AT 2, 6, THEN EVERY 8 WEEKS
     Route: 042
     Dates: start: 20180518, end: 20190319
  2. INFLECTRA [Suspect]
     Active Substance: INFLIXIMAB-DYYB
     Indication: Crohn^s disease
     Dosage: 300 MG, AT 2, 6, THEN EVERY 8 WEEKS
     Route: 042
     Dates: start: 20180522
  3. INFLECTRA [Suspect]
     Active Substance: INFLIXIMAB-DYYB
     Dosage: 300 MG, AT 2, 6, THEN EVERY 8 WEEKS
     Route: 042
     Dates: start: 20180602
  4. INFLECTRA [Suspect]
     Active Substance: INFLIXIMAB-DYYB
     Dosage: 300 MG, AT 2, 6, THEN EVERY 8 WEEKS
     Route: 042
     Dates: start: 20180707
  5. INFLECTRA [Suspect]
     Active Substance: INFLIXIMAB-DYYB
     Dosage: 300 MG, AT 2, 6, THEN EVERY 8 WEEKS
     Route: 042
     Dates: start: 20180929, end: 20180929
  6. INFLECTRA [Suspect]
     Active Substance: INFLIXIMAB-DYYB
     Dosage: 300 MG, AT 2, 6, THEN EVERY 8 WEEKS
     Route: 042
     Dates: start: 20190318
  7. INFLECTRA [Suspect]
     Active Substance: INFLIXIMAB-DYYB
     Dosage: 300 MG, AT 2, 6, THEN EVERY 8 WEEKS
     Route: 042
     Dates: start: 20190318
  8. INFLECTRA [Suspect]
     Active Substance: INFLIXIMAB-DYYB
     Dosage: 300 MG, AT 2, 6, THEN EVERY 8 WEEKS (RE-INDUCTION)
     Route: 042
     Dates: start: 20190511, end: 20191011
  9. INFLECTRA [Suspect]
     Active Substance: INFLIXIMAB-DYYB
     Dosage: 300 MG, AT 2, 6, THEN EVERY 8 WEEKS
     Route: 042
     Dates: start: 20190525
  10. INFLECTRA [Suspect]
     Active Substance: INFLIXIMAB-DYYB
     Dosage: 300 MG, AT 2, 6, THEN EVERY 8 WEEKS
     Route: 042
     Dates: start: 20190817
  11. INFLECTRA [Suspect]
     Active Substance: INFLIXIMAB-DYYB
     Dosage: 300 MG, AT 2, 6, THEN EVERY 8 WEEKS
     Route: 042
     Dates: start: 20191011, end: 20191011
  12. INFLECTRA [Suspect]
     Active Substance: INFLIXIMAB-DYYB
     Dosage: 10 MG/KG, EVERY 5 WEEKS
     Route: 042
     Dates: start: 20191204
  13. INFLECTRA [Suspect]
     Active Substance: INFLIXIMAB-DYYB
     Dosage: 10 MG/KG, EVERY 5 WEEKS
     Route: 042
     Dates: start: 20191204, end: 20200523
  14. INFLECTRA [Suspect]
     Active Substance: INFLIXIMAB-DYYB
     Dosage: 10 MG/KG, EVERY 5 WEEKS
     Route: 042
     Dates: start: 20200109, end: 20200728
  15. INFLECTRA [Suspect]
     Active Substance: INFLIXIMAB-DYYB
     Dosage: 10 MG/KG, EVERY 5 WEEKS
     Route: 042
     Dates: start: 20200523, end: 20200523
  16. INFLECTRA [Suspect]
     Active Substance: INFLIXIMAB-DYYB
     Dosage: 480 MG, AT 0, 2, 6 WEEKS, EVERY 8 WEEKS (RE-INDUCTION)
     Route: 042
     Dates: start: 20200609, end: 20200728
  17. INFLECTRA [Suspect]
     Active Substance: INFLIXIMAB-DYYB
     Dosage: 480 MG, Q 0, 2, 6 WEEKS, EVERY 8 WEEKS (RE-INDUCTION)
     Route: 042
     Dates: start: 20200728
  18. INFLECTRA [Suspect]
     Active Substance: INFLIXIMAB-DYYB
     Dosage: 480 MG, AT 0, 2, 6 WEEKS, EVERY 8 WEEKS (RE-INDUCTION)
     Route: 042
     Dates: start: 20200728, end: 20200728
  19. INFLECTRA [Suspect]
     Active Substance: INFLIXIMAB-DYYB
     Dosage: 250 MG, 0, 2, 6 AND THEN EVERY 8 WEEKS (RE-INDUCTION)
     Route: 042
     Dates: start: 20210227
  20. INFLECTRA [Suspect]
     Active Substance: INFLIXIMAB-DYYB
     Dosage: 250 MG, 0, 2, 6 AND THEN EVERY 8 WEEKS (RE-INDUCTION)
     Route: 042
     Dates: start: 20210312
  21. INFLECTRA [Suspect]
     Active Substance: INFLIXIMAB-DYYB
     Dosage: 250 MG, 0, 2, 6 AND THEN EVERY 8 WEEKS (RE-INDUCTION)
     Route: 042
     Dates: start: 20210413
  22. INFLECTRA [Suspect]
     Active Substance: INFLIXIMAB-DYYB
     Dosage: 250 MG, 0, 2, 6 AND THEN EVERY 8 WEEKS (RE-INDUCTION)
     Route: 042
     Dates: start: 20210621, end: 20210621
  23. INFLECTRA [Suspect]
     Active Substance: INFLIXIMAB-DYYB
     Dosage: 250 MG, 0, 2, 6 AND THEN EVERY 8 WEEKS (RE-INDUCTION)
     Route: 042
     Dates: start: 20210923
  24. INFLECTRA [Suspect]
     Active Substance: INFLIXIMAB-DYYB
     Dosage: 250 MG, 0, 2, 6 AND THEN EVERY 8 WEEKS (RE-INDUCTION)
     Route: 042
     Dates: start: 20220207
  25. INFLECTRA [Suspect]
     Active Substance: INFLIXIMAB-DYYB
     Dosage: 250 MG, 0, 2, 6 AND THEN EVERY 8 WEEKS (RE-INDUCTION)
     Route: 042
     Dates: start: 20220610
  26. INFLECTRA [Suspect]
     Active Substance: INFLIXIMAB-DYYB
     Dosage: 250 MG, 0, 2, 6 AND THEN EVERY 8 WEEKS
     Route: 042
     Dates: start: 20220927
  27. ATIVAN [Concomitant]
     Active Substance: LORAZEPAM
     Indication: Anxiety
     Dosage: 1 DF, AS NEEDED STATUS UNKNOWN
     Route: 065
  28. DIPHENHYDRAMINE [Concomitant]
     Active Substance: DIPHENHYDRAMINE
     Indication: Premedication
     Dosage: 25 MG
     Route: 048
     Dates: start: 20200609
  29. FERAMAX [Concomitant]
     Active Substance: IRON\POLYSACCHARIDES
     Indication: Anaemia
     Dosage: UNK
  30. VALIUM [Concomitant]
     Active Substance: DIAZEPAM
     Indication: Anxiety
     Dosage: 10 MG
     Route: 065
     Dates: start: 202001
  31. VALIUM [Concomitant]
     Active Substance: DIAZEPAM
     Indication: Panic attack

REACTIONS (32)
  - Appendicitis [Recovered/Resolved]
  - Condition aggravated [Not Recovered/Not Resolved]
  - Hypertension [Not Recovered/Not Resolved]
  - Hernia [Unknown]
  - Foot deformity [Recovering/Resolving]
  - Off label use [Unknown]
  - Off label use [Unknown]
  - Off label use [Unknown]
  - Inappropriate schedule of product administration [Unknown]
  - Product dose omission issue [Unknown]
  - Intentional product use issue [Unknown]
  - Feeling jittery [Not Recovered/Not Resolved]
  - Insomnia [Unknown]
  - Feeling hot [Unknown]
  - Blood pressure fluctuation [Unknown]
  - Nasopharyngitis [Unknown]
  - Nervousness [Unknown]
  - Malaise [Recovering/Resolving]
  - Vomiting [Recovering/Resolving]
  - Heart rate irregular [Unknown]
  - Stress [Unknown]
  - Headache [Not Recovered/Not Resolved]
  - Blood pressure systolic increased [Unknown]
  - Malaise [Not Recovered/Not Resolved]
  - Sinusitis [Not Recovered/Not Resolved]
  - Dyspnoea [Unknown]
  - Limb injury [Recovering/Resolving]
  - Pain in extremity [Unknown]
  - Nervousness [Unknown]
  - Oropharyngeal pain [Not Recovered/Not Resolved]
  - Malaise [Unknown]
  - Arthralgia [Unknown]

NARRATIVE: CASE EVENT DATE: 20180101
